FAERS Safety Report 13622403 (Version 1)
Quarter: 2017Q2

REPORT INFORMATION
  Report Type: Spontaneous
  Country: DE (occurrence: DE)
  Receive Date: 20170607
  Receipt Date: 20170607
  Transmission Date: 20170830
  Serious: Yes (Hospitalization, Other)
  Sender: FDA-Public Use
  Company Number: DE-TEVA-773500GER

PATIENT
  Age: 64 Year
  Sex: Female

DRUGS (8)
  1. XIMOVAN [Suspect]
     Active Substance: ZOPICLONE
     Route: 048
     Dates: start: 20161209, end: 20161226
  2. XIMOVAN [Suspect]
     Active Substance: ZOPICLONE
     Route: 048
     Dates: start: 20161227, end: 20161229
  3. CARMEN [Concomitant]
     Active Substance: LERCANIDIPINE
     Route: 048
     Dates: start: 2011
  4. NEBIVOLOL. [Suspect]
     Active Substance: NEBIVOLOL
     Route: 048
     Dates: start: 2011
  5. L-THYROXIN [Concomitant]
     Active Substance: LEVOTHYROXINE SODIUM
     Route: 048
     Dates: start: 2006
  6. CANDESARTAN. [Concomitant]
     Active Substance: CANDESARTAN
     Route: 048
     Dates: start: 2011
  7. HYGROTON [Suspect]
     Active Substance: CHLORTHALIDONE
     Route: 048
     Dates: start: 2011
  8. XIMOVAN [Suspect]
     Active Substance: ZOPICLONE
     Route: 048
     Dates: start: 20170104

REACTIONS (1)
  - Delirium [Recovered/Resolved]

NARRATIVE: CASE EVENT DATE: 20170104
